FAERS Safety Report 10189602 (Version 1)
Quarter: 2014Q2

REPORT INFORMATION
  Report Type: Spontaneous
  Country: US (occurrence: US)
  Receive Date: 20140522
  Receipt Date: 20140522
  Transmission Date: 20141212
  Serious: Yes (Other)
  Sender: FDA-Public Use
  Company Number: US-GLAXOSMITHKLINE-A1074130A

PATIENT
  Age: 66 Year
  Sex: Female

DRUGS (2)
  1. MEKINIST [Suspect]
     Indication: NEOPLASM MALIGNANT
     Dosage: 2MG UNKNOWN
     Route: 065
     Dates: start: 20140127
  2. TAFINLAR [Suspect]
     Indication: NEOPLASM MALIGNANT
     Dosage: 75MG UNKNOWN
     Route: 065
     Dates: start: 20130917

REACTIONS (2)
  - Metastases to central nervous system [Unknown]
  - Drug ineffective [Unknown]
